FAERS Safety Report 4891471-5 (Version None)
Quarter: 2005Q4

REPORT INFORMATION
  Report Type: 
  Country: None (occurrence: None)
  Receive Date: 20051221
  Receipt Date: 20050923
  Transmission Date: 20060501
  Serious: No
  Sender: FDA-Public Use
  Company Number: US151745

PATIENT
  Age: 48 Year
  Sex: Female
  Weight: 59 kg

DRUGS (11)
  1. SENSIPAR [Suspect]
     Indication: HYPERPARATHYROIDISM SECONDARY
     Dosage: 60 MG, 1 IN 1 DAYS, PO
     Route: 048
     Dates: start: 20050809
  2. WARFARIN [Concomitant]
  3. ATORVASTATIN CALCIUM [Concomitant]
  4. SEVELAMER HCL [Concomitant]
  5. METOPROLOL [Concomitant]
  6. NEPHRO-CAPS [Concomitant]
  7. PHOSLO [Concomitant]
  8. HYDRALAZINE HYDROCHLORIDE [Concomitant]
  9. FERROUS SULFATE TAB [Concomitant]
  10. CYCLOSPORINE [Concomitant]
  11. PREDNISONE [Concomitant]

REACTIONS (1)
  - INTERNATIONAL NORMALISED RATIO INCREASED [None]
